FAERS Safety Report 10011249 (Version 1)
Quarter: 2014Q1

REPORT INFORMATION
  Report Type: Spontaneous
  Country: US (occurrence: None)
  Receive Date: 20140312
  Receipt Date: 20140312
  Transmission Date: 20141002
  Serious: Yes (Life-Threatening)
  Sender: FDA-Public Use
  Company Number: 2014AP001695

PATIENT
  Age: 65 Year
  Sex: Male

DRUGS (7)
  1. THEO-DUR [Suspect]
     Indication: CHRONIC OBSTRUCTIVE PULMONARY DISEASE
     Dosage: TAB-PR;PO;QD
     Route: 048
  2. VERTISERC(BETHAHISTINE HYDROCHLORIDE) [Concomitant]
  3. VERAPAMIL(VERAPAMIL) [Concomitant]
  4. KEPPRA(LEVETIRACETAM) [Concomitant]
  5. TRITTICO(TRAZODONE HYDROCHLORIDE) [Concomitant]
  6. SERETIDE DISCUS(SERETIDE) [Concomitant]
  7. LEVOFLOXACIN [Suspect]
     Indication: BRONCHITIS
     Route: 048
     Dates: start: 20140119, end: 20140121

REACTIONS (3)
  - Drug interaction [None]
  - Drug prescribing error [None]
  - Convulsion [None]
